FAERS Safety Report 6141865-5 (Version None)
Quarter: 2009Q2

REPORT INFORMATION
  Report Type: 
  Country: None (occurrence: None)
  Receive Date: 20090402
  Receipt Date: 20090327
  Transmission Date: 20091009
  Serious: Yes (Other)
  Sender: FDA-Public Use
  Company Number: GB-JNJFOC-20081102512

PATIENT
  Age: 16 Year
  Sex: Female

DRUGS (4)
  1. TOPAMAX [Suspect]
     Indication: EPILEPSY
     Route: 048
  2. OLANZAPINE [Concomitant]
     Indication: PSYCHOTIC DISORDER
  3. HALOPERIDOL [Concomitant]
     Indication: PSYCHOTIC DISORDER
  4. VALPROATE SODIUM [Concomitant]
     Indication: GRAND MAL CONVULSION

REACTIONS (6)
  - ABNORMAL BEHAVIOUR [None]
  - EATING DISORDER [None]
  - FATIGUE [None]
  - HALLUCINATION, VISUAL [None]
  - PSYCHOTIC DISORDER [None]
  - WEIGHT INCREASED [None]
